FAERS Safety Report 10549416 (Version 2)
Quarter: 2015Q2

REPORT INFORMATION
  Report Type: Spontaneous
  Country: US (occurrence: US)
  Receive Date: 20141028
  Receipt Date: 20150611
  Transmission Date: 20150821
  Serious: Yes (Hospitalization)
  Sender: FDA-Public Use
  Company Number: US-BAYER-2014-155277

PATIENT
  Age: 34 Year
  Sex: Female
  Weight: 81.18 kg

DRUGS (1)
  1. MIRENA [Suspect]
     Active Substance: LEVONORGESTREL
     Indication: CONTRACEPTION
     Dosage: 20 MCG/24HR, CONT
     Route: 015
     Dates: start: 20060914, end: 20080801

REACTIONS (5)
  - Procedural pain [None]
  - Pain [None]
  - Malaise [None]
  - Fallopian tube disorder [None]
  - Uterine perforation [None]

NARRATIVE: CASE EVENT DATE: 200609
